FAERS Safety Report 17517034 (Version 4)
Quarter: 2020Q4

REPORT INFORMATION
  Report Type: Spontaneous
  Country: JP (occurrence: JP)
  Receive Date: 20200309
  Receipt Date: 20201105
  Transmission Date: 20210113
  Serious: Yes (Other)
  Sender: FDA-Public Use
  Company Number: JP-009507513-2003JPN002757

PATIENT
  Age: 69 Year
  Sex: Female
  Weight: 45 kg

DRUGS (10)
  1. GLACTIV [Suspect]
     Active Substance: SITAGLIPTIN
     Dosage: 50 MILLIGRAM, QD
     Route: 048
     Dates: start: 20200622
  2. FORXIGA [Suspect]
     Active Substance: DAPAGLIFLOZIN
     Dosage: 5 MG, EVERYDAY
     Route: 048
     Dates: start: 20200622, end: 20200825
  3. FORXIGA [Suspect]
     Active Substance: DAPAGLIFLOZIN
     Dosage: 5 MG, QOD
     Route: 048
     Dates: start: 20200826
  4. GLIMEPIRIDE. [Concomitant]
     Active Substance: GLIMEPIRIDE
     Indication: TYPE 2 DIABETES MELLITUS
     Dosage: 1 MG, EVERYDAY
     Route: 048
     Dates: start: 20120714
  5. GLACTIV [Suspect]
     Active Substance: SITAGLIPTIN
     Dosage: 100 MILLIGRAM, Q12H
     Route: 048
     Dates: start: 20200303, end: 20200621
  6. FORXIGA [Suspect]
     Active Substance: DAPAGLIFLOZIN
     Indication: TYPE 2 DIABETES MELLITUS
     Dosage: 5 MG, EVERYDAY
     Route: 048
     Dates: start: 20200228, end: 20200229
  7. LIXIANA [Concomitant]
     Active Substance: EDOXABAN TOSYLATE
     Indication: TYPE 2 DIABETES MELLITUS
     Dosage: UNK(UNTIL 29 FEB 2020)
     Route: 048
     Dates: end: 20200229
  8. LIXIANA [Concomitant]
     Active Substance: EDOXABAN TOSYLATE
     Dosage: UNK(UNTIL 29 FEB 2020)
     Route: 048
  9. GLACTIV [Suspect]
     Active Substance: SITAGLIPTIN
     Indication: TYPE 2 DIABETES MELLITUS
     Dosage: 50 MILLIGRAM, EVERYDAY
     Route: 048
     Dates: start: 20101021, end: 20200302
  10. GLIMEPIRIDE. [Concomitant]
     Active Substance: GLIMEPIRIDE
     Dosage: 1 MG, EVERYDAY
     Route: 048
     Dates: start: 20120714

REACTIONS (4)
  - Anaemia [Unknown]
  - Ovarian cancer [Unknown]
  - Haematochezia [Recovering/Resolving]
  - Retinal haemorrhage [Unknown]

NARRATIVE: CASE EVENT DATE: 20180801
